FAERS Safety Report 10379897 (Version 1)
Quarter: 2014Q3

REPORT INFORMATION
  Report Type: Spontaneous
  Country: US (occurrence: US)
  Receive Date: 20140812
  Receipt Date: 20140812
  Transmission Date: 20150326
  Serious: Yes (Hospitalization)
  Sender: FDA-Public Use
  Company Number: US-BRISTOL-MYERS SQUIBB COMPANY-21287560

PATIENT
  Age: 71 Year
  Sex: Male
  Weight: 77.1 kg

DRUGS (2)
  1. ELIQUIS [Suspect]
     Active Substance: APIXABAN
     Route: 048
     Dates: start: 201401
  2. FLECAINIDE [Concomitant]
     Active Substance: FLECAINIDE

REACTIONS (2)
  - Product quality issue [Unknown]
  - Cardiac pacemaker insertion [Unknown]

NARRATIVE: CASE EVENT DATE: 2014
